FAERS Safety Report 15924134 (Version 1)
Quarter: 2019Q1

REPORT INFORMATION
  Report Type: Spontaneous
  Country: US (occurrence: US)
  Receive Date: 20190206
  Receipt Date: 20190206
  Transmission Date: 20190417
  Serious: Yes (Death)
  Sender: FDA-Public Use
  Company Number: None

PATIENT
  Age: 74 Year
  Sex: Female
  Weight: 88.2 kg

DRUGS (1)
  1. PHENYTOIN. [Suspect]
     Active Substance: PHENYTOIN
     Indication: SEIZURE
     Dates: start: 20181212, end: 20181231

REACTIONS (4)
  - Mental status changes [None]
  - Respiratory failure [None]
  - Blood culture positive [None]
  - Toxic epidermal necrolysis [None]

NARRATIVE: CASE EVENT DATE: 20190122
